FAERS Safety Report 5014892-9 (Version None)
Quarter: 2006Q2

REPORT INFORMATION
  Report Type: 
  Country: None (occurrence: None)
  Receive Date: 20060414
  Receipt Date: 20060119
  Transmission Date: 20061013
  Serious: No
  Sender: FDA-Public Use
  Company Number: 2006SP000336

PATIENT
  Age: 50 Year
  Sex: Male
  Weight: 95.2554 kg

DRUGS (1)
  1. LUNESTA [Suspect]
     Indication: INSOMNIA
     Dosage: 2 MG;PRN;ORAL
     Route: 048
     Dates: start: 20050101

REACTIONS (1)
  - MEMORY IMPAIRMENT [None]
